FAERS Safety Report 6139757-0 (Version None)
Quarter: 2009Q1

REPORT INFORMATION
  Report Type: 
  Country: None (occurrence: None)
  Receive Date: 20090330
  Receipt Date: 20090330
  Transmission Date: 20090719
  Serious: Yes (Hospitalization)
  Sender: FDA-Public Use
  Company Number: None

PATIENT
  Age: 56 Year
  Sex: Male

DRUGS (1)
  1. SIMVASTATIN [Suspect]
     Indication: HYPERLIPIDAEMIA
     Dosage: 80 MG EVERY DAY PO
     Route: 048
     Dates: start: 20080920, end: 20090121

REACTIONS (8)
  - BLOOD CREATINE PHOSPHOKINASE INCREASED [None]
  - CONFUSIONAL STATE [None]
  - DELUSION [None]
  - HALLUCINATION [None]
  - HEADACHE [None]
  - HEPATIC ENZYME INCREASED [None]
  - INSOMNIA [None]
  - MENTAL STATUS CHANGES [None]
